FAERS Safety Report 16678742 (Version 1)
Quarter: 2019Q3

REPORT INFORMATION
  Report Type: Spontaneous
  Country: US (occurrence: US)
  Receive Date: 20190807
  Receipt Date: 20190807
  Transmission Date: 20191004
  Serious: No
  Sender: FDA-Public Use
  Company Number: US-LYNE LABORATORIES INC.-2072851

PATIENT
  Age: 73 Year
  Sex: Female
  Weight: 54.55 kg

DRUGS (1)
  1. TRIAMCINOLONE ACETONIDE. [Suspect]
     Active Substance: TRIAMCINOLONE ACETONIDE
     Indication: ANGULAR CHEILITIS
     Route: 048
     Dates: start: 20190120, end: 20190120

REACTIONS (1)
  - Application site pain [Recovered/Resolved]
